FAERS Safety Report 5758733-0 (Version None)
Quarter: 2008Q2

REPORT INFORMATION
  Report Type: 
  Country: None (occurrence: None)
  Receive Date: 20080603
  Receipt Date: 20080603
  Transmission Date: 20081010
  Serious: Yes (Hospitalization)
  Sender: FDA-Public Use
  Company Number: None

PATIENT
  Age: 62 Year
  Sex: Male

DRUGS (2)
  1. GLIPIZIDE [Suspect]
     Indication: DIABETES MELLITUS
     Dosage: 5 MG BID PO
     Route: 048
     Dates: start: 20030219, end: 20080509
  2. INSULIN [Suspect]
     Dosage: 10 UNITS BID SQ
     Route: 058
     Dates: start: 20070805, end: 20070822

REACTIONS (1)
  - HYPOGLYCAEMIA [None]
